FAERS Safety Report 7771971-0 (Version None)
Quarter: 2011Q3

REPORT INFORMATION
  Report Type: 
  Country: None (occurrence: None)
  Receive Date: 20110922
  Receipt Date: 20110526
  Transmission Date: 20111222
  Serious: No
  Sender: FDA-Public Use
  Company Number: US-ASTRAZENECA-2011SE32995

PATIENT
  Age: 65 Year
  Sex: Female

DRUGS (10)
  1. SEROQUEL XR [Suspect]
     Indication: HALLUCINATION
     Route: 048
     Dates: start: 20110301
  2. METOPROLOL [Concomitant]
  3. POTASSIUM [Concomitant]
  4. WARFARIN SODIUM [Concomitant]
  5. SEROQUEL XR [Suspect]
     Indication: SOMNAMBULISM
     Route: 048
     Dates: start: 20110301
  6. DILTIAZEM [Concomitant]
  7. SPIRONOLACTONE [Concomitant]
  8. PROZAC [Concomitant]
  9. DIGOXIN [Concomitant]
  10. LASIX [Concomitant]

REACTIONS (2)
  - OFF LABEL USE [None]
  - FALL [None]
